FAERS Safety Report 21794459 (Version 2)
Quarter: 2024Q2

REPORT INFORMATION
  Report Type: Report from Study
  Country: AR (occurrence: AR)
  Receive Date: 20221229
  Receipt Date: 20240507
  Transmission Date: 20240716
  Serious: Yes (Other)
  Sender: FDA-Public Use
  Company Number: AR-002147023-NVSC2020AR329800

PATIENT
  Age: 73 Year
  Sex: Female

DRUGS (3)
  1. COSENTYX [Suspect]
     Active Substance: SECUKINUMAB
     Indication: Psoriasis
     Dosage: 300 MG, QMO
     Route: 058
     Dates: start: 20191011
  2. COSENTYX [Suspect]
     Active Substance: SECUKINUMAB
     Indication: Psoriatic arthropathy
     Dosage: 300 MG, QMO
     Route: 058
     Dates: start: 20191111
  3. COSENTYX [Suspect]
     Active Substance: SECUKINUMAB
     Dosage: 140 MG, QMO
     Route: 058

REACTIONS (14)
  - Psoriatic arthropathy [Unknown]
  - Diabetes mellitus [Unknown]
  - Rosacea [Not Recovered/Not Resolved]
  - COVID-19 [Recovered/Resolved]
  - Bronchitis [Recovering/Resolving]
  - Condition aggravated [Unknown]
  - Feeling abnormal [Unknown]
  - Memory impairment [Unknown]
  - Rash macular [Unknown]
  - Rash [Unknown]
  - Pruritus [Unknown]
  - Incorrect dose administered [Unknown]
  - Wrist fracture [Unknown]
  - Psoriasis [Unknown]

NARRATIVE: CASE EVENT DATE: 20201115
